FAERS Safety Report 4967454-3 (Version None)
Quarter: 2006Q2

REPORT INFORMATION
  Report Type: 
  Country: None (occurrence: None)
  Receive Date: 20060407
  Receipt Date: 20060407
  Transmission Date: 20061013
  Serious: Yes (Disabling)
  Sender: FDA-Public Use
  Company Number: None

PATIENT
  Age: 60 Year
  Sex: Female

DRUGS (1)
  1. CYMBALTA [Suspect]
     Dosage: 1  TWICE DAILY  PO
     Route: 048
     Dates: start: 20050928, end: 20060227

REACTIONS (6)
  - ABDOMINAL PAIN [None]
  - BLOOD PRESSURE INCREASED [None]
  - DYSGEUSIA [None]
  - HEADACHE [None]
  - JAUNDICE [None]
  - LIVER FUNCTION TEST ABNORMAL [None]
